FAERS Safety Report 4864308-8 (Version None)
Quarter: 2005Q4

REPORT INFORMATION
  Report Type: 
  Country: None (occurrence: None)
  Receive Date: 20051222
  Receipt Date: 20050926
  Transmission Date: 20060501
  Serious: Yes (Hospitalization)
  Sender: FDA-Public Use
  Company Number: US-MERCK-0509USA04154

PATIENT
  Age: 71 Year
  Sex: Male
  Weight: 95 kg

DRUGS (8)
  1. VIOXX [Suspect]
     Indication: OSTEOARTHRITIS
     Route: 048
     Dates: start: 19990701, end: 20030415
  2. VIOXX [Suspect]
     Indication: PAIN
     Route: 048
     Dates: start: 19990701, end: 20030415
  3. MICROZIDE [Concomitant]
     Route: 065
     Dates: start: 19990813, end: 20020309
  4. HYDROCHLOROTHIAZIDE [Concomitant]
     Route: 065
     Dates: start: 20010625, end: 20030601
  5. GLIPIZIDE [Concomitant]
     Route: 065
     Dates: start: 19991206, end: 20030409
  6. ASPIRIN [Concomitant]
     Route: 065
     Dates: start: 19850101
  7. ZOCOR [Concomitant]
     Route: 048
     Dates: start: 20011001, end: 20040201
  8. SYNTHROID [Concomitant]
     Indication: THYROID DISORDER
     Route: 065
     Dates: start: 19990624, end: 20030612

REACTIONS (3)
  - ARTHRITIS [None]
  - LOSS OF CONSCIOUSNESS [None]
  - MYOCARDIAL INFARCTION [None]
